FAERS Safety Report 7575500-6 (Version None)
Quarter: 2011Q2

REPORT INFORMATION
  Report Type: 
  Country: None (occurrence: None)
  Receive Date: 20110627
  Receipt Date: 20110615
  Transmission Date: 20111010
  Serious: Yes (Other)
  Sender: FDA-Public Use
  Company Number: US-ELI_LILLY_AND_COMPANY-US201106005224

PATIENT
  Sex: Male

DRUGS (8)
  1. LANTUS [Concomitant]
     Dosage: 68 U, UNKNOWN
  2. ACTOS [Concomitant]
  3. CRESTOR [Concomitant]
     Dosage: UNK
  4. ZOLOFT [Concomitant]
  5. HUMALOG [Suspect]
     Dosage: 33 U, OTHER
  6. PLAVIX [Concomitant]
     Dosage: UNK
  7. HUMALOG [Suspect]
     Indication: DIABETES MELLITUS
     Dosage: UNK, PRN
  8. HUMALOG [Suspect]
     Dosage: 41 U, OTHER

REACTIONS (6)
  - ARTERIOSCLEROSIS [None]
  - BLOOD GLUCOSE DECREASED [None]
  - BLOOD GLUCOSE INCREASED [None]
  - ATTENTION DEFICIT/HYPERACTIVITY DISORDER [None]
  - ASTHMA [None]
  - CHEST PAIN [None]
